FAERS Safety Report 4355839-8 (Version None)
Quarter: 2004Q2

REPORT INFORMATION
  Report Type: 
  Country: None (occurrence: None)
  Receive Date: 20040505
  Receipt Date: 20040421
  Transmission Date: 20050107
  Serious: Yes (Hospitalization)
  Sender: FDA-Public Use
  Company Number: FABR-10519

PATIENT
  Age: 46 Year
  Sex: Male
  Weight: 90.5 kg

DRUGS (1)
  1. FABRAZYME [Suspect]
     Indication: FABRY'S DISEASE
     Dosage: 90 MG IV
     Route: 042
     Dates: start: 20040220

REACTIONS (1)
  - CORONARY ARTERY OCCLUSION [None]
